FAERS Safety Report 8388904-9 (Version None)
Quarter: 2012Q2

REPORT INFORMATION
  Report Type: 
  Country: None (occurrence: None)
  Receive Date: 20120528
  Receipt Date: 20120521
  Transmission Date: 20120825
  Serious: No
  Sender: FDA-Public Use
  Company Number: US-BIOGENIDEC-2012BI017911

PATIENT
  Age: 68 Year
  Sex: Female

DRUGS (1)
  1. TYSABRI [Suspect]
     Indication: MULTIPLE SCLEROSIS
     Route: 042
     Dates: start: 20120417

REACTIONS (5)
  - SWELLING FACE [None]
  - OEDEMA PERIPHERAL [None]
  - BURNING SENSATION [None]
  - INFUSION RELATED REACTION [None]
  - MULTIPLE SCLEROSIS RELAPSE [None]
